FAERS Safety Report 18296804 (Version 4)
Quarter: 2020Q4

REPORT INFORMATION
  Report Type: Spontaneous
  Country: DE (occurrence: DE)
  Receive Date: 20200922
  Receipt Date: 20201216
  Transmission Date: 20210113
  Serious: Yes (Other)
  Sender: FDA-Public Use
  Company Number: DE-PFIZER INC-2020350431

PATIENT
  Age: 18 Year
  Sex: Male
  Weight: 75 kg

DRUGS (6)
  1. METHOTREXATE SODIUM. [Suspect]
     Active Substance: METHOTREXATE SODIUM
     Indication: OSTEOSARCOMA
     Dosage: 12000 MG/M2, CYCLIC [IN WEEK 4 AND 5 OF EACH CYCLE (IN TOTAL 12 INFUSIONS OVER 4 HOURS)]
     Route: 041
  2. PIPERACILLIN AND TAZOBACTAM [Interacting]
     Active Substance: PIPERACILLIN SODIUM\TAZOBACTAM SODIUM
     Indication: URINARY TRACT INFECTION
     Dosage: 4.5 G (FIRST DOSE WAS INFUSED 30 MINUTES PRIOR TO THE HD-MTX INFUSION) X 4 (AS SHORT INFUSION)
  3. LEUCOVORINE [Concomitant]
     Active Substance: LEUCOVORIN
     Indication: NERVOUS SYSTEM DISORDER
     Dosage: 300 MG/M2, 4X/DAY (BSA CF EVERY 6 HOURS)
  4. DOXORUBICIN [Concomitant]
     Active Substance: DOXORUBICIN
     Indication: OSTEOSARCOMA
     Dosage: UNK, CYCLIC
  5. PIPERACILLIN AND TAZOBACTAM [Interacting]
     Active Substance: PIPERACILLIN SODIUM\TAZOBACTAM SODIUM
     Indication: PYREXIA
  6. CISPLATIN. [Concomitant]
     Active Substance: CISPLATIN
     Indication: OSTEOSARCOMA
     Dosage: UNK, CYCLIC

REACTIONS (3)
  - Drug interaction [Recovered/Resolved]
  - Drug clearance decreased [Recovered/Resolved]
  - Drug level increased [Recovered/Resolved]
